FAERS Safety Report 5742457-X (Version None)
Quarter: 2008Q2

REPORT INFORMATION
  Report Type: 
  Country: None (occurrence: None)
  Receive Date: 20080515
  Receipt Date: 20080228
  Transmission Date: 20081010
  Serious: Yes (Hospitalization)
  Sender: FDA-Public Use
  Company Number: 81213

PATIENT
  Sex: Male
  Weight: 80 kg

DRUGS (4)
  1. IBUPROFEN [Suspect]
     Dosage: 400 MG ORAL
     Route: 048
     Dates: end: 20080212
  2. FENTANYL-100 [Concomitant]
  3. ACETAMINOPHEN [Concomitant]
  4. TRAMADOL HCL [Concomitant]

REACTIONS (1)
  - HAEMATOCHEZIA [None]
